FAERS Safety Report 21923434 (Version 2)
Quarter: 2023Q1

REPORT INFORMATION
  Report Type: Spontaneous
  Country: HR (occurrence: None)
  Receive Date: 20230129
  Receipt Date: 20230206
  Transmission Date: 20230418
  Serious: Yes (Death, Hospitalization)
  Sender: FDA-Public Use
  Company Number: HR-ROCHE-3271861

PATIENT
  Sex: Male

DRUGS (1)
  1. EVRYSDI [Suspect]
     Active Substance: RISDIPLAM
     Indication: Spinal muscular atrophy
     Route: 048
     Dates: start: 20220401

REACTIONS (3)
  - Death [Fatal]
  - Respiratory tract infection [Unknown]
  - Influenza [Unknown]
